FAERS Safety Report 20246496 (Version 1)
Quarter: 2021Q4

REPORT INFORMATION
  Report Type: Spontaneous
  Country: US (occurrence: None)
  Receive Date: 20211228
  Receipt Date: 20211228
  Transmission Date: 20220303
  Serious: Yes (Hospitalization)
  Sender: FDA-Public Use
  Company Number: None

PATIENT
  Age: 73 Year
  Sex: Male
  Weight: 91 kg

DRUGS (10)
  1. TECARTUS [Suspect]
     Active Substance: BREXUCABTAGENE AUTOLEUCEL
     Indication: Mantle cell lymphoma
     Dosage: FREQUENCY : ONCE;?
     Route: 042
     Dates: start: 20211102, end: 20211102
  2. acyclovir (Zovirax) [Concomitant]
     Dates: start: 20211101, end: 20211228
  3. KEPPRA [Concomitant]
     Active Substance: LEVETIRACETAM
     Dates: start: 20211101, end: 20211228
  4. piperacillin-tazobactam (Zosyn) 3.375 gram/50 mL dextrose IVPB [Concomitant]
     Dates: start: 20211031, end: 20211109
  5. anakinra (Kineret) subcutaneous injection [Concomitant]
     Dates: end: 20211120
  6. DECADRON [Concomitant]
     Active Substance: DEXAMETHASONE
     Dates: end: 20211205
  7. ACTEMRA [Concomitant]
     Active Substance: TOCILIZUMAB
     Dates: end: 20211105
  8. caspofungin (Cancidas) [Concomitant]
     Dates: end: 20211117
  9. isavuconazonium sulfate (Cresemba) [Concomitant]
     Dates: end: 20211228
  10. atovaquone (Mepron) [Concomitant]
     Dates: start: 20211027, end: 20211110

REACTIONS (11)
  - Acute kidney injury [None]
  - Hypernatraemia [None]
  - Failure to thrive [None]
  - Odynophagia [None]
  - Ulcer [None]
  - Streptococcal bacteraemia [None]
  - Mental status changes [None]
  - Respiratory failure [None]
  - Lymphodepletion [None]
  - Candida infection [None]
  - Bronchopulmonary aspergillosis [None]

NARRATIVE: CASE EVENT DATE: 20211102
